FAERS Safety Report 13403583 (Version 1)
Quarter: 2017Q2

REPORT INFORMATION
  Report Type: Report from Study
  Country: None (occurrence: US)
  Receive Date: 20170404
  Receipt Date: 20170404
  Transmission Date: 20170830
  Serious: Yes (Other)
  Sender: FDA-Public Use
  Company Number: US-ABBVIE-17P-163-1929163-00

PATIENT
  Age: 59 Year
  Sex: Female

DRUGS (2)
  1. VIEKIRA XR [Suspect]
     Active Substance: DASABUVIR SODIUM MONOHYDRATE\OMBITASVIR HEMINONAHYDRATE\PARITAPREVIR DIHYDRATE\RITONAVIR
     Indication: HEPATITIS C
     Route: 048
     Dates: start: 20161226, end: 20170308
  2. MODERIBA [Suspect]
     Active Substance: RIBAVIRIN
     Indication: HEPATITIS C
     Route: 048
     Dates: start: 20161226, end: 20170308

REACTIONS (3)
  - Abdominal pain upper [Unknown]
  - Intestinal scarring [Unknown]
  - Nausea [Unknown]

NARRATIVE: CASE EVENT DATE: 20170302
